FAERS Safety Report 23667006 (Version 2)
Quarter: 2024Q3

REPORT INFORMATION
  Report Type: Spontaneous
  Country: US (occurrence: US)
  Receive Date: 20240325
  Receipt Date: 20240717
  Transmission Date: 20241017
  Serious: Yes (Hospitalization, Other)
  Sender: NOVO NORDISK
  Company Number: US-NOVOPROD-1192048

PATIENT
  Age: 41 Year
  Sex: Female
  Weight: 65.7 kg

DRUGS (17)
  1. OZEMPIC [Suspect]
     Active Substance: SEMAGLUTIDE
     Dosage: UNK (DOSE INCREASED EVERY MONTH)
     Route: 058
  2. OZEMPIC [Suspect]
     Active Substance: SEMAGLUTIDE
     Dosage: 2 MG, QW
     Route: 058
     Dates: start: 20231105
  3. OZEMPIC [Suspect]
     Active Substance: SEMAGLUTIDE
     Dosage: DOSE DECREASED TO 1 MG AND LATER WILL BE DECREASED TO 0.5 MG
     Route: 058
     Dates: start: 20231105
  4. OZEMPIC [Suspect]
     Active Substance: SEMAGLUTIDE
     Indication: Type 2 diabetes mellitus
     Dosage: 0.25 MG, QW
     Route: 058
     Dates: start: 20230613
  5. NARCAN [Concomitant]
     Active Substance: NALOXONE HYDROCHLORIDE
     Indication: Respiratory depression
     Dosage: 4 MG/ACTUATION
     Route: 045
  6. VITAMIN D3 [Concomitant]
     Active Substance: CHOLECALCIFEROL
     Indication: Product used for unknown indication
     Dosage: 50 ?G, QD
     Route: 048
  7. WELLBUTRIN XL [Concomitant]
     Active Substance: BUPROPION HYDROCHLORIDE
     Indication: Product used for unknown indication
     Dosage: 300 MG, QD
     Route: 048
  8. DEPO-PROVERA [Concomitant]
     Active Substance: MEDROXYPROGESTERONE ACETATE
     Indication: Product used for unknown indication
     Dosage: UNK
  9. HYDROCORTISONE [Concomitant]
     Active Substance: HYDROCORTISONE\HYDROCORTISONE ACETATE
     Indication: Product used for unknown indication
     Dosage: APPLY TO AFFECTED AREA TWICE A DAY
     Route: 061
  10. ALPRAZOLAM [Concomitant]
     Active Substance: ALPRAZOLAM
     Indication: Product used for unknown indication
     Dosage: 2 MG, PRN (EVERY MORNING AND NIGHT AS NEEDED)
     Route: 048
  11. AUGMENTIN [Concomitant]
     Active Substance: AMOXICILLIN\CLAVULANATE POTASSIUM
     Indication: Product used for unknown indication
     Dosage: 875-125 MG 1 TAB, BID X 7 DAYS
     Route: 048
  12. CYCLOBENZAPRINE [Concomitant]
     Active Substance: CYCLOBENZAPRINE
     Indication: Muscle spasms
     Dosage: 10 MG, BID (PRN)
     Route: 048
  13. DOCUSATE SODIUM [Concomitant]
     Active Substance: DOCUSATE SODIUM
     Indication: Constipation
     Dosage: 100 MG, TID
     Route: 048
  14. IBUPROFEN [Concomitant]
     Active Substance: IBUPROFEN
     Indication: Toothache
     Dosage: 800 MG, TID (PRN)
     Route: 048
  15. VARENICLINE [Concomitant]
     Active Substance: VARENICLINE
     Dosage: 0.5 MG, BID FOR 4 DAYS
     Route: 048
  16. VARENICLINE [Concomitant]
     Active Substance: VARENICLINE
     Indication: Product used for unknown indication
     Dosage: 0.5 MG, QD FOR 3 DAYS
     Route: 048
  17. VARENICLINE [Concomitant]
     Active Substance: VARENICLINE
     Dosage: 1 MG, BID FOR 11 WEEKS
     Route: 048

REACTIONS (7)
  - Chronic gastritis [Recovered/Resolved]
  - Pancreatic failure [Recovered/Resolved]
  - Type 1 diabetes mellitus [Unknown]
  - Hypoacusis [Unknown]
  - Glycosylated haemoglobin increased [Recovered/Resolved]
  - Dizziness [Unknown]
  - Weight decreased [Recovered/Resolved]

NARRATIVE: CASE EVENT DATE: 20231201
